FAERS Safety Report 6176052-8 (Version None)
Quarter: 2009Q2

REPORT INFORMATION
  Report Type: 
  Country: None (occurrence: None)
  Receive Date: 20090501
  Receipt Date: 20090427
  Transmission Date: 20091009
  Serious: Yes (Death)
  Sender: FDA-Public Use
  Company Number: CA-ROCHE-630091

PATIENT
  Sex: Female

DRUGS (1)
  1. CAPECITABINE [Suspect]
     Route: 048
     Dates: start: 20080229

REACTIONS (1)
  - DEATH [None]
